FAERS Safety Report 18741909 (Version 4)
Quarter: 2021Q1

REPORT INFORMATION
  Report Type: Spontaneous
  Country: US (occurrence: US)
  Receive Date: 20210114
  Receipt Date: 20210215
  Transmission Date: 20210419
  Serious: No
  Sender: FDA-Public Use
  Company Number: US-PFIZER INC-2021018695

PATIENT
  Age: 73 Year
  Sex: Female
  Weight: 90.72 kg

DRUGS (1)
  1. LYRICA [Suspect]
     Active Substance: PREGABALIN
     Indication: TREMOR
     Dosage: 150 MG, 3X/DAY

REACTIONS (7)
  - Off label use [Unknown]
  - Swelling face [Recovering/Resolving]
  - Sinusitis [Not Recovered/Not Resolved]
  - Limb discomfort [Unknown]
  - Fear of death [Unknown]
  - Drug effective for unapproved indication [Unknown]
  - Nervousness [Unknown]

NARRATIVE: CASE EVENT DATE: 202101
